FAERS Safety Report 22019017 (Version 1)
Quarter: 2023Q1

REPORT INFORMATION
  Report Type: Report from Study
  Country: US (occurrence: US)
  Receive Date: 20230222
  Receipt Date: 20230222
  Transmission Date: 20230418
  Serious: Yes (Other)
  Sender: FDA-Public Use
  Company Number: US-ABBVIE-4313933

PATIENT
  Sex: Female

DRUGS (1)
  1. SKYRIZI [Suspect]
     Active Substance: RISANKIZUMAB-RZAA
     Indication: Product used for unknown indication
     Route: 058
     Dates: end: 202211

REACTIONS (8)
  - Pancreatitis [Unknown]
  - Vomiting [Unknown]
  - Hepatic vascular thrombosis [Unknown]
  - Dry mouth [Unknown]
  - Nausea [Unknown]
  - Acute kidney injury [Unknown]
  - Lip dry [Unknown]
  - Pseudocyst [Unknown]
